FAERS Safety Report 8525667-8 (Version None)
Quarter: 2012Q3

REPORT INFORMATION
  Report Type: 
  Country: None (occurrence: None)
  Receive Date: 20120720
  Receipt Date: 20120710
  Transmission Date: 20120928
  Serious: Yes (Other)
  Sender: FDA-Public Use
  Company Number: JP-VERTEX PHARMACEUTICALS INC.-AE-2012-007907

PATIENT
  Age: 69 Year
  Sex: Male

DRUGS (10)
  1. TELAVIC (TELAPREVIR) [Suspect]
     Route: 048
     Dates: start: 20120531, end: 20120626
  2. REBETOL [Concomitant]
     Route: 048
     Dates: start: 20120501
  3. PEG-INTRON [Concomitant]
     Indication: HEPATITIS C
     Route: 058
     Dates: start: 20120403
  4. OLEMETEC [Concomitant]
     Route: 048
  5. LOXOPROFEN [Concomitant]
     Route: 048
  6. REBETOL [Concomitant]
     Indication: HEPATITIS C
     Route: 048
     Dates: start: 20120403, end: 20120416
  7. REBETOL [Concomitant]
     Route: 048
     Dates: start: 20120417, end: 20120501
  8. TRICHLORMETHIAZIDE [Concomitant]
     Route: 048
  9. CLOBETASOL PROPIONATE [Concomitant]
     Route: 061
     Dates: end: 20120704
  10. TELAVIC (TELAPREVIR) [Suspect]
     Indication: HEPATITIS C
     Route: 048
     Dates: start: 20120403, end: 20120516

REACTIONS (5)
  - PYREXIA [None]
  - HYPERURICAEMIA [None]
  - PRURITUS [None]
  - INJECTION SITE RASH [None]
  - RASH [None]
